FAERS Safety Report 7164598-5 (Version None)
Quarter: 2010Q4

REPORT INFORMATION
  Report Type: 
  Country: None (occurrence: None)
  Receive Date: 20101203
  Receipt Date: 20101118
  Transmission Date: 20110411
  Serious: Yes (Hospitalization, Other)
  Sender: FDA-Public Use
  Company Number: JPI-P-013040

PATIENT
  Age: 51 Year
  Sex: Female
  Weight: 48.5349 kg

DRUGS (1)
  1. XYREM [Suspect]
     Indication: INSOMNIA
     Dosage: (,2 IN 1 D),ORAL,  9 GM (4.5 GM,2 IN 1 D), ORAL
     Route: 048
     Dates: start: 20070701

REACTIONS (4)
  - DECREASED APPETITE [None]
  - HIP FRACTURE [None]
  - JOINT DISLOCATION [None]
  - WEIGHT DECREASED [None]
